FAERS Safety Report 25608239 (Version 1)
Quarter: 2025Q3

REPORT INFORMATION
  Report Type: Report from Study
  Country: EU (occurrence: EU)
  Receive Date: 20250725
  Receipt Date: 20250725
  Transmission Date: 20251020
  Serious: Yes (Other)
  Sender: SERVIER
  Company Number: EU-SERVIER-S25010451

PATIENT

DRUGS (6)
  1. VORASIDENIB [Suspect]
     Active Substance: VORASIDENIB
     Indication: Astrocytoma
     Dosage: 40 MG, QD
     Route: 048
     Dates: start: 20250311, end: 20250424
  2. VORASIDENIB [Suspect]
     Active Substance: VORASIDENIB
     Dosage: 40 MG, QD
     Route: 048
     Dates: start: 20250513, end: 20250611
  3. VIMPAT [Concomitant]
     Active Substance: LACOSAMIDE
     Indication: Epilepsy
     Dosage: 400 MG, QD
     Route: 048
     Dates: start: 20201001
  4. VIMPAT [Concomitant]
     Active Substance: LACOSAMIDE
     Dosage: 500 MG, QD
     Route: 048
     Dates: start: 20250429
  5. VIMPAT [Concomitant]
     Active Substance: LACOSAMIDE
     Dosage: 600 MG, QD
     Route: 048
     Dates: start: 20250519
  6. CLOBAZAM [Concomitant]
     Active Substance: CLOBAZAM
     Indication: Epilepsy
     Route: 048
     Dates: start: 20250201

REACTIONS (2)
  - Hepatic cytolysis [Recovered/Resolved]
  - Malignant neoplasm progression [Not Recovered/Not Resolved]

NARRATIVE: CASE EVENT DATE: 20250424
